FAERS Safety Report 9596101 (Version 1)
Quarter: 2013Q4

REPORT INFORMATION
  Report Type: Report from Study
  Country: DE (occurrence: DE)
  Receive Date: 20131004
  Receipt Date: 20131004
  Transmission Date: 20140711
  Serious: Yes (Death)
  Sender: FDA-Public Use
  Company Number: DE-ABBVIE-13P-062-1154328-00

PATIENT
  Age: 88 Year
  Sex: Male

DRUGS (1)
  1. LEUPRORELIN DEPOT [Suspect]
     Indication: PROSTATE CANCER
     Dates: start: 20120615, end: 20120918

REACTIONS (1)
  - Death [Fatal]
